FAERS Safety Report 9185276 (Version 1)
Quarter: 2013Q1

REPORT INFORMATION
  Report Type: Spontaneous
  Country: US (occurrence: None)
  Receive Date: 20130321
  Receipt Date: 20130321
  Transmission Date: 20140127
  Serious: Yes (Death)
  Sender: FDA-Public Use
  Company Number: UTC-030224

PATIENT
  Age: 54 Year
  Sex: Female
  Weight: 62.27 kg

DRUGS (1)
  1. REMODULIN (1 MILLIGRAM/MILLILITERS, INJECTION FOR INFUSION) (TREPROSTINIL SODIUM) [Suspect]
     Indication: COR PULMONALE CHRONIC
     Dosage: 44.64 UG/KG (0.031 UG/KG, 1 IN 1 MIN), INTRAVENOUS
     Dates: start: 20120405

REACTIONS (1)
  - Death [None]
